FAERS Safety Report 5170284-3 (Version None)
Quarter: 2006Q4

REPORT INFORMATION
  Report Type: 
  Country: None (occurrence: None)
  Receive Date: 20061212
  Receipt Date: 20061204
  Transmission Date: 20070319
  Serious: Yes (Other)
  Sender: FDA-Public Use
  Company Number: US-JNJFOC-20061003583

PATIENT
  Sex: Female
  Weight: 61.24 kg

DRUGS (2)
  1. TOPAMAX [Suspect]
     Route: 048
  2. TOPAMAX [Suspect]
     Indication: MIGRAINE
     Route: 048

REACTIONS (6)
  - BLINDNESS [None]
  - CONJUNCTIVAL OEDEMA [None]
  - MYOPIA [None]
  - SCLERAL OEDEMA [None]
  - VISION BLURRED [None]
  - VISUAL DISTURBANCE [None]
